FAERS Safety Report 16678648 (Version 1)
Quarter: 2019Q3

REPORT INFORMATION
  Report Type: Spontaneous
  Country: GB (occurrence: GB)
  Receive Date: 20190807
  Receipt Date: 20190807
  Transmission Date: 20191004
  Serious: Yes (Other)
  Sender: FDA-Public Use
  Company Number: GB-PFIZER INC-2019331832

PATIENT
  Age: 61 Year
  Sex: Female
  Weight: 66.67 kg

DRUGS (2)
  1. DOXYCYCLINE MONOHYDRATE [Suspect]
     Active Substance: DOXYCYCLINE
     Indication: LOWER RESPIRATORY TRACT INFECTION
     Dosage: 100 MG, 1X/DAY
     Route: 048
     Dates: start: 20190628, end: 20190630
  2. MEZAVANT XL [Concomitant]
     Active Substance: MESALAMINE
     Dosage: UNK

REACTIONS (6)
  - Asthma [Unknown]
  - Dyspnoea [Unknown]
  - Colitis ulcerative [Unknown]
  - Pruritus [Unknown]
  - Disease recurrence [Unknown]
  - Diarrhoea [Not Recovered/Not Resolved]

NARRATIVE: CASE EVENT DATE: 20190629
